FAERS Safety Report 8563515 (Version 3)
Quarter: 2013Q1

REPORT INFORMATION
  Report Type: Spontaneous
  Country: US (occurrence: US)
  Receive Date: 20120515
  Receipt Date: 20130220
  Transmission Date: 20140127
  Serious: No
  Sender: FDA-Public Use
  Company Number: US-ASTRAZENECA-2012SE28624

PATIENT
  Age: 79 Year
  Sex: Female

DRUGS (2)
  1. SYMBICORT PMDI [Suspect]
     Dosage: 160/4.5 MCG, DAILY
     Route: 055
  2. OTHER MEDICATIONS [Suspect]
     Route: 065

REACTIONS (4)
  - Weight decreased [Unknown]
  - Adverse event [Unknown]
  - Hypersensitivity [Unknown]
  - Drug dose omission [Unknown]
